FAERS Safety Report 9832040 (Version 2)
Quarter: 2014Q1

REPORT INFORMATION
  Report Type: Spontaneous
  Country: FR (occurrence: FR)
  Receive Date: 20140121
  Receipt Date: 20140212
  Transmission Date: 20141002
  Serious: Yes (Hospitalization)
  Sender: FDA-Public Use
  Company Number: PHHY2014FR005747

PATIENT
  Sex: Male

DRUGS (11)
  1. CERTICAN [Suspect]
     Indication: RENAL FAILURE
     Dosage: 1 MG, DAILY
     Route: 048
     Dates: start: 20120104, end: 201310
  2. NEORAL [Concomitant]
     Dosage: 160 MG, DAILY
     Route: 048
     Dates: start: 2009
  3. CELLCEPT [Concomitant]
     Dosage: 2 G, DAILY
     Route: 048
     Dates: start: 2009
  4. CORTANCYL [Concomitant]
     Dosage: 5 MG, DAILY
     Route: 048
     Dates: start: 2009
  5. MOPRAL [Concomitant]
     Dosage: UNK UKN, UNK
  6. ICAZ [Concomitant]
     Dosage: 2.5 MG, DAILY
     Route: 048
     Dates: start: 2011
  7. GLUCOPHAGE [Concomitant]
     Dosage: 850 MG, DAILY
     Route: 048
     Dates: start: 2009
  8. PARACETAMOL [Concomitant]
     Dosage: UNK UKN, UNK
  9. UVEDOSE [Concomitant]
     Dosage: UNK UKN, UNK
  10. TRIATEC [Concomitant]
     Dosage: 2.5 MG, DAILY
     Route: 048
     Dates: start: 2009
  11. LIPANTHYL [Concomitant]
     Dosage: 167 MG, BID
     Route: 048
     Dates: start: 201305

REACTIONS (2)
  - Palatal oedema [Recovered/Resolved]
  - Tongue oedema [Recovered/Resolved]
